FAERS Safety Report 4899557-6 (Version None)
Quarter: 2006Q1

REPORT INFORMATION
  Report Type: 
  Country: None (occurrence: None)
  Receive Date: 20060118
  Receipt Date: 20050729
  Transmission Date: 20060701
  Serious: No
  Sender: FDA-Public Use
  Company Number: 2005001470

PATIENT
  Age: 75 Year
  Sex: Male
  Weight: 68.9467 kg

DRUGS (8)
  1. TARCEVA [Suspect]
     Indication: LUNG NEOPLASM MALIGNANT
     Dosage: 125 MG (QD), ORAL
     Route: 048
  2. LIPITOR [Concomitant]
  3. PREVACID [Concomitant]
  4. ADVAIR DISKUS 100/50 [Concomitant]
  5. ZOLOFT [Concomitant]
  6. NEURONTIN [Concomitant]
  7. PLAVIX [Concomitant]
  8. NIFEREX (POLYSACCHARIDE - IRON COMPLEX) [Concomitant]

REACTIONS (3)
  - ALOPECIA [None]
  - CONJUNCTIVITIS [None]
  - RASH [None]
